FAERS Safety Report 8276252-7 (Version None)
Quarter: 2012Q2

REPORT INFORMATION
  Report Type: 
  Country: None (occurrence: None)
  Receive Date: 20120412
  Receipt Date: 20120402
  Transmission Date: 20120825
  Serious: Yes (Hospitalization, Other)
  Sender: FDA-Public Use
  Company Number: PHHY2012FR028926

PATIENT
  Sex: Male

DRUGS (11)
  1. ACETAMINOPHEN AND TRAMADOL HCL [Concomitant]
  2. METFORMIN HCL [Concomitant]
     Dosage: 2 DF, DAILY
  3. RASILEZ [Suspect]
     Dosage: 1 DF
     Dates: start: 20110101, end: 20120229
  4. METFORMIN HCL [Concomitant]
     Dosage: 3 DF, DAILY
     Dates: start: 20120101
  5. CALCIPARINE [Concomitant]
  6. ACETAMINOPHEN [Concomitant]
  7. AMITRIPTYLINE HCL [Concomitant]
     Dosage: 75 MG, DAILY
  8. OMEPRAZOLE [Concomitant]
     Dosage: 20 MG
  9. ACTRAPID INSULIN NOVO [Concomitant]
  10. KETOPROFEN [Suspect]
     Dosage: UNK
     Dates: end: 20120229
  11. AUGMENTIN '125' [Concomitant]

REACTIONS (15)
  - BLOOD CREATININE INCREASED [None]
  - VIITH NERVE PARALYSIS [None]
  - AGITATION [None]
  - PNEUMONIA ASPIRATION [None]
  - DEHYDRATION [None]
  - RENAL FAILURE ACUTE [None]
  - DECREASED APPETITE [None]
  - VOMITING [None]
  - VISUAL IMPAIRMENT [None]
  - LACTIC ACIDOSIS [None]
  - HEADACHE [None]
  - CARDIAC ARREST [None]
  - BRADYCARDIA [None]
  - HYPERKALAEMIA [None]
  - TACHYPNOEA [None]
